FAERS Safety Report 9442512 (Version 2)
Quarter: 2013Q3

REPORT INFORMATION
  Report Type: Spontaneous
  Country: IR (occurrence: IR)
  Receive Date: 20130806
  Receipt Date: 20130806
  Transmission Date: 20140515
  Serious: Yes (Death)
  Sender: FDA-Public Use
  Company Number: IR-ROCHE-1257209

PATIENT
  Age: 63 Year
  Sex: Male

DRUGS (2)
  1. MABTHERA [Suspect]
     Indication: IMMUNE THROMBOCYTOPENIC PURPURA
     Route: 065
  2. LEVODOPA [Concomitant]

REACTIONS (4)
  - Stevens-Johnson syndrome [Fatal]
  - Sepsis [Fatal]
  - Pyrexia [Fatal]
  - Disturbance in attention [Fatal]
